FAERS Safety Report 8376676 (Version 2)
Quarter: 2013Q1

REPORT INFORMATION
  Report Type: Report from Study
  Country: US (occurrence: US)
  Receive Date: 20120129
  Receipt Date: 20130129
  Transmission Date: 20140127
  Serious: No
  Sender: FDA-Public Use
  Company Number: US-ABBOTT-11P-163-0860261-00

PATIENT
  Age: 38 None
  Sex: Female
  Weight: 73.55 kg

DRUGS (11)
  1. HUMIRA 40 MG/0.8 ML PEN [Suspect]
     Indication: RHEUMATOID ARTHRITIS
     Route: 058
     Dates: start: 20110902
  2. HUMIRA 40 MG/0.8 ML PEN [Suspect]
     Indication: CROHN^S DISEASE
  3. PREDNISONE [Concomitant]
     Indication: INFLAMMATION
  4. BELLADONNA PD [Concomitant]
     Indication: IRRITABLE BOWEL SYNDROME
     Dosage: TWICE DAILY
  5. PENTASA [Concomitant]
     Indication: COLITIS ULCERATIVE
     Dosage: 1000 MG BID 2 TABS
  6. TEMAZEPAM [Concomitant]
     Indication: PRODUCT USED FOR UNKNOWN INDICATION
     Dosage: AT BEDTIME?AT BEDTIME
  7. TRAMADOL [Concomitant]
     Indication: PAIN
  8. MULTIVITAMINS [Concomitant]
     Indication: PRODUCT USED FOR UNKNOWN INDICATION
  9. UNKNOWN SUPPLEMENTS [Concomitant]
     Indication: PRODUCT USED FOR UNKNOWN INDICATION
  10. PRO ENZYME [Concomitant]
     Indication: PRODUCT USED FOR UNKNOWN INDICATION
  11. UNKNOWN STEROIDS [Concomitant]
     Indication: CROHN^S DISEASE
     Dates: start: 201108

REACTIONS (7)
  - Rheumatoid arthritis [Not Recovered/Not Resolved]
  - Endometriosis [Unknown]
  - Ovarian cyst [Unknown]
  - Pruritus [Not Recovered/Not Resolved]
  - Arthralgia [Recovering/Resolving]
  - Muscular weakness [Recovering/Resolving]
  - Dry skin [Not Recovered/Not Resolved]
